FAERS Safety Report 19160070 (Version 2)
Quarter: 2021Q2

REPORT INFORMATION
  Report Type: Spontaneous
  Country: US (occurrence: US)
  Receive Date: 20210420
  Receipt Date: 20210426
  Transmission Date: 20210717
  Serious: No
  Sender: FDA-Public Use
  Company Number: US-BAUSCH-BL-2021-013908

PATIENT
  Age: 15 Year
  Sex: Female

DRUGS (11)
  1. METRONIDAZOLE. [Suspect]
     Active Substance: METRONIDAZOLE
     Indication: CROHN^S DISEASE
     Route: 061
  2. METHOTREXATE. [Concomitant]
     Active Substance: METHOTREXATE
     Indication: VULVAL DISORDER
  3. METHOTREXATE. [Concomitant]
     Active Substance: METHOTREXATE
     Indication: CROHN^S DISEASE
     Route: 058
  4. CLOBETASOL [Suspect]
     Active Substance: CLOBETASOL
     Indication: VULVAL DISORDER
  5. TACROLIMUS. [Suspect]
     Active Substance: TACROLIMUS
     Indication: CROHN^S DISEASE
     Route: 061
  6. METRONIDAZOLE. [Suspect]
     Active Substance: METRONIDAZOLE
     Indication: VULVAL DISORDER
     Route: 061
  7. TRIAMCINOLONE [Suspect]
     Active Substance: TRIAMCINOLONE
     Indication: VULVAL DISORDER
  8. TRIAMCINOLONE [Suspect]
     Active Substance: TRIAMCINOLONE
     Indication: CROHN^S DISEASE
     Dosage: SERIAL
     Route: 026
  9. CLOBETASOL [Suspect]
     Active Substance: CLOBETASOL
     Indication: CROHN^S DISEASE
     Route: 061
  10. TACROLIMUS. [Suspect]
     Active Substance: TACROLIMUS
     Indication: VULVAL DISORDER
  11. INFLIXIMAB [Concomitant]
     Active Substance: INFLIXIMAB
     Indication: CROHN^S DISEASE
     Route: 065

REACTIONS (1)
  - Therapeutic product effect decreased [Unknown]
